FAERS Safety Report 8328971-1 (Version None)
Quarter: 2012Q2

REPORT INFORMATION
  Report Type: 
  Country: None (occurrence: None)
  Receive Date: 20120502
  Receipt Date: 20120427
  Transmission Date: 20120825
  Serious: Yes (Other)
  Sender: FDA-Public Use
  Company Number: FR-SANOFI-AVENTIS-2012SA029771

PATIENT
  Age: 84 Year
  Sex: Female

DRUGS (10)
  1. CORDARONE [Suspect]
     Indication: TACHYCARDIA
     Route: 048
     Dates: start: 20110412, end: 20110419
  2. AUGMENTIN [Suspect]
     Route: 065
     Dates: start: 20110412
  3. DEPAKENE [Suspect]
     Dosage: IN DROPS
     Route: 048
     Dates: start: 20110412
  4. IMOVANE [Concomitant]
     Route: 048
  5. PRAZEPAM [Concomitant]
     Route: 048
  6. CORDARONE [Suspect]
     Route: 048
     Dates: start: 20110420
  7. LOVENOX [Suspect]
     Route: 058
     Dates: start: 20110412
  8. ASPIRIN [Suspect]
     Route: 048
     Dates: start: 20110417
  9. RAMIPRIL [Suspect]
     Route: 048
     Dates: start: 20110422
  10. BISOPROLOL FUMARATE [Suspect]
     Route: 048
     Dates: start: 20110419

REACTIONS (1)
  - HYPONATRAEMIA [None]
